FAERS Safety Report 8235188-8 (Version None)
Quarter: 2012Q1

REPORT INFORMATION
  Report Type: 
  Country: None (occurrence: None)
  Receive Date: 20120326
  Receipt Date: 20120313
  Transmission Date: 20120608
  Serious: Yes (Other)
  Sender: FDA-Public Use
  Company Number: JP-ROCHE-1050382

PATIENT
  Sex: Male

DRUGS (16)
  1. ADALAT CC [Concomitant]
  2. OMALIZUMAB [Suspect]
     Dates: start: 20111208
  3. QVAR 40 [Concomitant]
     Dates: start: 20110610
  4. SINGULAIR [Concomitant]
  5. EPALRESTAT [Concomitant]
  6. OMALIZUMAB [Suspect]
     Dates: start: 20111222, end: 20111222
  7. MUCOSOLVAN [Concomitant]
  8. LOSARTAN POTASSIUM [Concomitant]
  9. PREDNISOLONE [Concomitant]
  10. TICLOPIDINE HCL [Concomitant]
  11. BASEN [Concomitant]
  12. ASPIRIN [Concomitant]
  13. ISOSORBIDE MONONITRATE [Concomitant]
  14. OMALIZUMAB [Suspect]
     Indication: ASTHMA
     Route: 058
     Dates: start: 20111013
  15. CLEANAL [Concomitant]
  16. GLIMICRON [Concomitant]

REACTIONS (1)
  - VITH NERVE PARALYSIS [None]
